FAERS Safety Report 5720433-0 (Version None)
Quarter: 2008Q2

REPORT INFORMATION
  Report Type: 
  Country: None (occurrence: None)
  Receive Date: 20080428
  Receipt Date: 20080418
  Transmission Date: 20081010
  Serious: Yes (Hospitalization, Other)
  Sender: FDA-Public Use
  Company Number: BR-ABBOTT-08P-020-0448080-00

PATIENT
  Sex: Female

DRUGS (4)
  1. HUMIRA [Suspect]
     Indication: RHEUMATOID ARTHRITIS
     Route: 058
     Dates: start: 20071028, end: 20080201
  2. HUMIRA [Suspect]
     Route: 058
     Dates: start: 20080301
  3. METHOTREXATE [Concomitant]
     Indication: DRUG USE FOR UNKNOWN INDICATION
     Dosage: 15 MILLIGRAM
     Route: 050
  4. MAGISTRAL FORMULA WITH PREDNISONE 2MG, DICLOFENAC 50 MG, FOLIC ACID [Concomitant]
     Indication: DRUG USE FOR UNKNOWN INDICATION
     Dosage: 4 MG/100 MG/2 MG/80 MG
     Route: 048

REACTIONS (1)
  - CYST [None]
